FAERS Safety Report 6743906-0 (Version None)
Quarter: 2010Q2

REPORT INFORMATION
  Report Type: 
  Country: None (occurrence: None)
  Receive Date: 20100525
  Receipt Date: 20100517
  Transmission Date: 20101027
  Serious: Yes (Death)
  Sender: FDA-Public Use
  Company Number: 2010EU001989

PATIENT
  Age: 44 Year
  Sex: 0

DRUGS (3)
  1. TACROLIMUS [Suspect]
     Dosage: 8 NG/ML D
  2. MYCOPHENOLATE MOFETIL [Suspect]
     Dosage: 1 G/DAY, D
  3. CORTICOSTEROID NOS (CORTISTEROID NOS) [Suspect]
     Dosage: 2.5 MG/DAY, D

REACTIONS (7)
  - DEMYELINATION [None]
  - HEPATIC CIRRHOSIS [None]
  - HEPATITIS E [None]
  - MUSCLE ATROPHY [None]
  - PALMAR-PLANTAR ERYTHRODYSAESTHESIA SYNDROME [None]
  - PYRAMIDAL TRACT SYNDROME [None]
  - SHOCK HAEMORRHAGIC [None]
